FAERS Safety Report 14196174 (Version 1)
Quarter: 2017Q4

REPORT INFORMATION
  Report Type: Spontaneous
  Country: UY (occurrence: UY)
  Receive Date: 20171116
  Receipt Date: 20171116
  Transmission Date: 20180321
  Serious: Yes (Other)
  Sender: FDA-Public Use
  Company Number: UY-BAYER-2017-217052

PATIENT
  Age: 49 Year
  Sex: Female

DRUGS (1)
  1. MIRENA [Suspect]
     Active Substance: LEVONORGESTREL
     Indication: GENITAL HAEMORRHAGE
     Dosage: 20 MCG/24HR, CONT
     Route: 015
     Dates: start: 201706

REACTIONS (5)
  - Off label use of device [None]
  - Genital haemorrhage [None]
  - Genital haemorrhage [Recovered/Resolved]
  - Haemorrhagic anaemia [None]
  - Device use issue [None]

NARRATIVE: CASE EVENT DATE: 201706
